FAERS Safety Report 16060670 (Version 1)
Quarter: 2019Q1

REPORT INFORMATION
  Report Type: Spontaneous
  Country: US (occurrence: US)
  Receive Date: 20190312
  Receipt Date: 20190312
  Transmission Date: 20190418
  Serious: Yes (Other)
  Sender: FDA-Public Use
  Company Number: US-ROCHE-2279069

PATIENT
  Age: 11 Year
  Sex: Male

DRUGS (4)
  1. CIDOFOVIR. [Suspect]
     Active Substance: CIDOFOVIR
     Indication: CYTOMEGALOVIRUS COLITIS
     Route: 065
  2. GANCICLOVIR. [Suspect]
     Active Substance: GANCICLOVIR
     Indication: CYTOMEGALOVIRUS COLITIS
     Route: 065
  3. FOSCARNET SODIUM. [Suspect]
     Active Substance: FOSCARNET SODIUM
     Indication: PNEUMONIA CYTOMEGALOVIRAL
     Route: 065
  4. LETERMOVIR [Concomitant]
     Active Substance: LETERMOVIR
     Route: 065

REACTIONS (4)
  - Off label use [Unknown]
  - Nephropathy toxic [Unknown]
  - Electrolyte imbalance [Unknown]
  - Intentional product use issue [Unknown]
